FAERS Safety Report 4601159-3 (Version None)
Quarter: 2005Q1

REPORT INFORMATION
  Report Type: 
  Country: None (occurrence: None)
  Receive Date: 20050204
  Receipt Date: 20040621
  Transmission Date: 20050727
  Serious: Yes (Hospitalization)
  Sender: FDA-Public Use
  Company Number: US-2004-026129

PATIENT
  Age: 27 Year
  Sex: Female
  Weight: 63.5 kg

DRUGS (4)
  1. MIRENA [Suspect]
     Indication: CONTRACEPTION
     Dosage: 20 UG, CONT, INTRA-UTERINE
     Route: 015
     Dates: start: 20040409, end: 20040421
  2. ADVAIR (SALMETEROL XINAFOATE, FLUTICASONE PROPIONATE) [Concomitant]
  3. SOMA [Concomitant]
  4. PRENATAL VITAMINS (VITAMIN D NOS, RETINOL, NICOTINIC ACID, MINERALS NO [Concomitant]

REACTIONS (1)
  - UTERINE PERFORATION [None]
